FAERS Safety Report 12892096 (Version 2)
Quarter: 2016Q4

REPORT INFORMATION
  Report Type: Spontaneous
  Country: US (occurrence: US)
  Receive Date: 20161028
  Receipt Date: 20161124
  Transmission Date: 20170207
  Serious: Yes (Life-Threatening, Hospitalization, Other)
  Sender: FDA-Public Use
  Company Number: US-THE MEDICINES COMPANY-US-MDCO-16-00451

PATIENT
  Age: 62 Year
  Sex: Female
  Weight: 90 kg

DRUGS (3)
  1. FENTANYL. [Concomitant]
     Active Substance: FENTANYL
     Indication: PRODUCT USED FOR UNKNOWN INDICATION
     Dosage: 100 MG/HR
     Route: 062
  2. ORBACTIV [Suspect]
     Active Substance: ORITAVANCIN
     Indication: STAPHYLOCOCCAL INFECTION
     Route: 041
     Dates: start: 20160811
  3. LEVAQUIN [Concomitant]
     Active Substance: LEVOFLOXACIN
     Indication: WOUND INFECTION BACTERIAL
     Route: 048

REACTIONS (4)
  - Hypotension [Recovered/Resolved]
  - Blood lactic acid increased [Unknown]
  - Acute kidney injury [Unknown]
  - Sepsis [Recovered/Resolved]

NARRATIVE: CASE EVENT DATE: 20160811
